FAERS Safety Report 9778428 (Version 1)
Quarter: 2013Q4

REPORT INFORMATION
  Report Type: Spontaneous
  Country: IT (occurrence: IT)
  Receive Date: 20131223
  Receipt Date: 20131223
  Transmission Date: 20140711
  Serious: Yes (Other)
  Sender: FDA-Public Use
  Company Number: IT-TEVA-451601ISR

PATIENT
  Age: 71 Year
  Sex: Female
  Weight: 76 kg

DRUGS (5)
  1. FLUOROURACILE TEVA [Suspect]
     Indication: GASTRIC CANCER
     Dosage: 750 MILLIGRAM DAILY;
     Route: 042
     Dates: start: 20130826, end: 20130927
  2. ACIDO ALENDRONICO [Concomitant]
     Indication: OSTEOPOROSIS
     Dosage: 70 MILLIGRAM DAILY;
     Route: 048
     Dates: start: 20110824, end: 20131210
  3. LEDERFOLIN [Concomitant]
     Indication: GASTRIC CANCER
     Dosage: 17.6 MILLIGRAM DAILY; POWDER FOR SOLUTION FOR INFUSION
     Route: 042
     Dates: start: 20130826, end: 20130927
  4. LIMICAN [Concomitant]
     Indication: PROPHYLAXIS OF NAUSEA AND VOMITING
     Dosage: 50 MILLIGRAM DAILY;
     Route: 040
     Dates: start: 20130823, end: 20130927
  5. CARDIOASPIRIN 100 MG [Concomitant]
     Indication: THROMBOSIS PROPHYLAXIS
     Dosage: 1 DOSAGE FORMS DAILY; GASTRORESISTANT TABLET
     Route: 048
     Dates: start: 20110610, end: 20131210

REACTIONS (5)
  - Abdominal pain [Recovered/Resolved]
  - Abdominal pain upper [Recovered/Resolved]
  - Vomiting [Recovered/Resolved]
  - Diarrhoea [Recovered/Resolved]
  - Hypokalaemia [Recovered/Resolved]
